FAERS Safety Report 20754464 (Version 1)
Quarter: 2022Q2

REPORT INFORMATION
  Report Type: Spontaneous
  Country: US (occurrence: None)
  Receive Date: 20220426
  Receipt Date: 20220426
  Transmission Date: 20220721
  Serious: No
  Sender: FDA-Public Use
  Company Number: US-ROCHE-2878664

PATIENT
  Sex: Male

DRUGS (1)
  1. ESBRIET [Suspect]
     Active Substance: PIRFENIDONE
     Indication: Idiopathic pulmonary fibrosis
     Dosage: TAKE 3 CAPSULES (801 MG) BY MOUTH 3 TIMES A DAY
     Route: 048

REACTIONS (6)
  - Arthritis [Unknown]
  - Productive cough [Unknown]
  - Initial insomnia [Unknown]
  - Unevaluable event [Unknown]
  - Fatigue [Unknown]
  - Decreased appetite [Unknown]
